FAERS Safety Report 7264126-X (Version None)
Quarter: 2011Q1

REPORT INFORMATION
  Report Type: 
  Country: None (occurrence: None)
  Receive Date: 20110131
  Receipt Date: 20110124
  Transmission Date: 20110831
  Serious: Yes (Other)
  Sender: FDA-Public Use
  Company Number: IL-AMGEN-ISRSP2011001418

PATIENT
  Age: 63 Year
  Sex: Female

DRUGS (6)
  1. PREDNISONE [Concomitant]
     Dosage: UNK
  2. PLAQUENIL [Concomitant]
     Dosage: UNK
  3. ENBREL [Suspect]
     Indication: RHEUMATOID ARTHRITIS
     Dosage: 50 MG, QWK
  4. ENBREL [Suspect]
     Dosage: 50 MG, QWK
     Dates: start: 20110101
  5. ISONIAZID [Concomitant]
     Dosage: UNK
  6. METHOTREXATE SODIUM [Concomitant]
     Dosage: UNK

REACTIONS (3)
  - ASTHMA [None]
  - BRONCHITIS [None]
  - DYSPNOEA [None]
